FAERS Safety Report 5191454-4 (Version None)
Quarter: 2006Q4

REPORT INFORMATION
  Report Type: 
  Country: None (occurrence: None)
  Receive Date: 20061226
  Receipt Date: 20061012
  Transmission Date: 20070319
  Serious: Yes (Hospitalization)
  Sender: FDA-Public Use
  Company Number: JP-MERCK-0610USA09791

PATIENT
  Age: 72 Year
  Sex: Female
  Weight: 49 kg

DRUGS (4)
  1. SINGULAIR [Suspect]
     Indication: RHINITIS ALLERGIC
     Route: 048
     Dates: start: 20060801, end: 20060903
  2. THEO-DUR [Suspect]
     Indication: COUGH
     Route: 048
     Dates: start: 20060801, end: 20060903
  3. ZESULAN [Suspect]
     Indication: RHINITIS ALLERGIC
     Route: 048
     Dates: start: 20060801, end: 20060903
  4. LENDORMIN [Concomitant]
     Route: 048
     Dates: start: 20050101, end: 20060903

REACTIONS (11)
  - ARTHRALGIA [None]
  - BODY TEMPERATURE INCREASED [None]
  - HYPEREOSINOPHILIC SYNDROME [None]
  - JOINT SWELLING [None]
  - OEDEMA PERIPHERAL [None]
  - PAIN [None]
  - RHABDOMYOLYSIS [None]
  - THERAPY NON-RESPONDER [None]
  - WEIGHT DECREASED [None]
  - WEIGHT INCREASED [None]
  - WHITE BLOOD CELL COUNT INCREASED [None]
